FAERS Safety Report 11122130 (Version 1)
Quarter: 2015Q2

REPORT INFORMATION
  Report Type: Spontaneous
  Country: US (occurrence: US)
  Receive Date: 20150519
  Receipt Date: 20150519
  Transmission Date: 20150821
  Serious: Yes (Hospitalization, Other)
  Sender: FDA-Public Use
  Company Number: US-PFIZER INC-2015165019

PATIENT
  Age: 34 Year
  Sex: Female

DRUGS (2)
  1. DILANTIN [Suspect]
     Active Substance: PHENYTOIN
     Dosage: 0.097 G, UNK (TWICE DAILY FOR THE FIRST THREE DAYS AND THREE TIMES A DAY THEREAFTER)
     Dates: start: 19400507
  2. DILANTIN [Suspect]
     Active Substance: PHENYTOIN
     Dosage: 0.032 G, 3X/DAY

REACTIONS (16)
  - Hepatomegaly [Not Recovered/Not Resolved]
  - Rash maculo-papular [Unknown]
  - Burning sensation [Unknown]
  - Toxicity to various agents [Unknown]
  - Rash [Unknown]
  - Cyanosis [Unknown]
  - Face oedema [Unknown]
  - Pruritus [Unknown]
  - Headache [Unknown]
  - Asthenia [Unknown]
  - Pyrexia [Recovering/Resolving]
  - Skin exfoliation [Unknown]
  - Erythema [Unknown]
  - Peripheral swelling [Unknown]
  - Dermatitis [Recovering/Resolving]
  - Splenomegaly [Not Recovered/Not Resolved]

NARRATIVE: CASE EVENT DATE: 19400521
